FAERS Safety Report 18507159 (Version 2)
Quarter: 2020Q4

REPORT INFORMATION
  Report Type: Other
  Country: KR (occurrence: KR)
  Receive Date: 20201116
  Receipt Date: 20201125
  Transmission Date: 20210114
  Serious: Yes (Hospitalization)
  Sender: FDA-Public Use
  Company Number: KR-ROCHE-2712164

PATIENT
  Age: 69 Year
  Sex: Male

DRUGS (14)
  1. SOLONDO [Concomitant]
     Active Substance: PREDNISOLONE
     Dosage: QD
     Route: 048
     Dates: start: 20200901
  2. LYRICA [Concomitant]
     Active Substance: PREGABALIN
     Dosage: QD
     Route: 048
     Dates: start: 20200817, end: 20200909
  3. LAMINA-G [Concomitant]
     Route: 048
     Dates: start: 20200827
  4. GASMOTIN [Concomitant]
     Active Substance: MOSAPRIDE CITRATE
     Route: 048
  5. ESOMEZOLE [Concomitant]
     Dosage: QD
     Route: 048
     Dates: start: 20200827, end: 20200910
  6. RABEONE [Concomitant]
     Dosage: QD
     Route: 048
     Dates: start: 20200910
  7. DEXAMETHASONE DISODIUM PHOSPHATE [Concomitant]
     Active Substance: DEXAMETHASONE SODIUM PHOSPHATE
     Route: 042
     Dates: start: 20200827, end: 20200831
  8. DUPHALAC EASY [Concomitant]
     Active Substance: LACTULOSE
     Route: 048
     Dates: start: 20200831, end: 20200910
  9. MAGMIL [Concomitant]
     Active Substance: MAGNESIUM HYDROXIDE
     Route: 048
     Dates: start: 20200827, end: 20200828
  10. RESOLOR [Concomitant]
     Active Substance: PRUCALOPRIDE SUCCINATE
     Dosage: QD
     Route: 048
     Dates: start: 20200827, end: 20200910
  11. LYRICA [Concomitant]
     Active Substance: PREGABALIN
     Route: 048
     Dates: start: 20200910
  12. ALECTINIB. [Suspect]
     Active Substance: ALECTINIB
     Indication: PRODUCT USED FOR UNKNOWN INDICATION
     Route: 048
     Dates: start: 20200827
  13. PHAZYME [Concomitant]
     Active Substance: DIMETHICONE 410
     Route: 048
     Dates: start: 20200827
  14. ORODIPINE [Concomitant]
     Active Substance: AMLODIPINE OROTATE
     Indication: HYPERTENSION
     Route: 048
     Dates: start: 20200918

REACTIONS (2)
  - Diarrhoea [Recovered/Resolved]
  - Pneumonia [Recovered/Resolved]

NARRATIVE: CASE EVENT DATE: 20200916
